FAERS Safety Report 7778954-5 (Version None)
Quarter: 2011Q3

REPORT INFORMATION
  Report Type: 
  Country: None (occurrence: None)
  Receive Date: 20110926
  Receipt Date: 20110914
  Transmission Date: 20111222
  Serious: Yes (Hospitalization)
  Sender: FDA-Public Use
  Company Number: JP-PFIZER INC-2011189938

PATIENT
  Age: 70 Year
  Sex: Male
  Weight: 56.2 kg

DRUGS (27)
  1. METHOTREXATE SODIUM [Suspect]
     Indication: ADULT T-CELL LYMPHOMA/LEUKAEMIA
     Dosage: 15 MG, 1/8 WEEK
     Dates: start: 20110518, end: 20110726
  2. CARBOPLATIN [Suspect]
     Indication: ADULT T-CELL LYMPHOMA/LEUKAEMIA
     Dosage: 250 MG/M2, MONTHLY
     Route: 041
     Dates: start: 20110503
  3. DILTIAZEM HYDROCHLORIDE [Concomitant]
     Dosage: 40 MG, 1X/DAY
     Route: 048
  4. MECOBALAMIN [Concomitant]
     Dosage: 1500 MG, 1X/DAY
     Route: 048
     Dates: start: 20110615
  5. CYCLOPHOSPHAMIDE [Suspect]
     Indication: ADULT T-CELL LYMPHOMA/LEUKAEMIA
     Dosage: 350 MG/M2, MONTHLY
     Route: 041
     Dates: start: 20110413, end: 20110727
  6. PREDNISOLONE [Suspect]
     Dosage: 40 MG/M2, MONTHLY
     Route: 048
     Dates: start: 20110503
  7. CEFEPIME DIHYDROCHLORIDE HYDRATE [Concomitant]
     Dosage: 100 UG, 1X/DAY
     Route: 058
     Dates: start: 20110805
  8. NEUTROGIN [Concomitant]
     Dosage: 100 UG, UNK
     Route: 058
     Dates: start: 20110805
  9. PREDNISOLONE [Suspect]
     Indication: ADULT T-CELL LYMPHOMA/LEUKAEMIA
     Dosage: 40 MG/M2, MONTHLY
     Route: 048
     Dates: start: 20110413, end: 20110727
  10. ETOPOSIDE [Suspect]
     Indication: ADULT T-CELL LYMPHOMA/LEUKAEMIA
     Dosage: 100 MG/M2, MONTHLY
     Route: 041
     Dates: start: 20110503
  11. ACICLOVIR [Concomitant]
     Dosage: 400 MG, 1X/DAY
     Route: 048
     Dates: start: 20110416
  12. CYMERIN [Suspect]
     Indication: ADULT T-CELL LYMPHOMA/LEUKAEMIA
     Dosage: 60 MG/M2, MONTHLY
     Route: 041
     Dates: start: 20110420, end: 20110803
  13. ZOLPIDEM [Concomitant]
     Dosage: UNK MG, UNK
  14. PREDNISOLONE SODIUM SUCCINATE INJ [Suspect]
     Indication: ADULT T-CELL LYMPHOMA/LEUKAEMIA
     Dosage: 10 MG, 1/8 WEEK
     Dates: start: 20110518, end: 20110726
  15. RABEPRAZOLE SODIUM [Concomitant]
     Dosage: 100 MG, 1X/DAY
     Route: 048
  16. LIPITOR [Concomitant]
     Dosage: 5 MG, 1X/DAY
     Route: 048
  17. VINCRISTINE SULFATE [Suspect]
     Indication: ADULT T-CELL LYMPHOMA/LEUKAEMIA
     Dosage: 1 MG/M2, MONTHLY
     Route: 041
     Dates: start: 20110413, end: 20110727
  18. PREDNISOLONE [Suspect]
     Dosage: 40 MG/M2, MONTHLY
     Route: 048
     Dates: start: 20110420, end: 20110803
  19. CYTARABINE [Suspect]
     Indication: ADULT T-CELL LYMPHOMA/LEUKAEMIA
     Dosage: 40 MG, 1/8 WEEK
     Dates: start: 20110518, end: 20110726
  20. FLUCONAZOLE [Concomitant]
     Dosage: 80 MG, 1X/DAY
     Route: 048
  21. NIFEDIPINE [Concomitant]
     Dosage: 40 MG, 1X/DAY
     Route: 048
  22. DOXORUBICIN HYDROCHLORIDE [Suspect]
     Indication: ADULT T-CELL LYMPHOMA/LEUKAEMIA
     Dosage: 40 MG/M2, MONTHLY
     Route: 041
     Dates: start: 20110413, end: 20110727
  23. DOXORUBICIN HYDROCHLORIDE [Suspect]
     Dosage: 30 MG/M2, MONTHLY
     Route: 041
     Dates: start: 20110420, end: 20110803
  24. VINDESINE SULFATE [Suspect]
     Indication: ADULT T-CELL LYMPHOMA/LEUKAEMIA
     Dosage: 2.4 MG/M2, MONTHLY
     Route: 041
     Dates: start: 20110503
  25. SULFAMETHOXAZOLE AND TRIMETHOPRIM [Concomitant]
     Dosage: 200 MG, 1X/DAY
     Route: 048
  26. NITOROL R [Concomitant]
     Dosage: 100 MG, 1X/DAY
     Route: 048
  27. CEFEPIME DIHYDROCHLORIDE HYDRATE [Concomitant]
     Dosage: 4 MG, ROUTE IJ
     Dates: start: 20110805, end: 20110805

REACTIONS (2)
  - PNEUMONIA [None]
  - ENTEROCOLITIS [None]
